FAERS Safety Report 12922243 (Version 1)
Quarter: 2016Q4

REPORT INFORMATION
  Report Type: Spontaneous
  Country: US (occurrence: US)
  Receive Date: 20161108
  Receipt Date: 20161108
  Transmission Date: 20170207
  Serious: No
  Sender: FDA-Public Use
  Company Number: US-BRISTOL-MYERS SQUIBB COMPANY-BMS-2016-088587

PATIENT
  Sex: Male

DRUGS (1)
  1. OPDIVO [Suspect]
     Active Substance: NIVOLUMAB
     Indication: LUNG NEOPLASM MALIGNANT
     Dosage: UNK, QWK
     Route: 042
     Dates: start: 20160219

REACTIONS (8)
  - Dysgeusia [Unknown]
  - Drug ineffective [Unknown]
  - Somnolence [Unknown]
  - Contusion [Unknown]
  - Laceration [Unknown]
  - Fatigue [Unknown]
  - Decreased appetite [Unknown]
  - Fall [Unknown]
